FAERS Safety Report 9758310 (Version 1)
Quarter: 2013Q4

REPORT INFORMATION
  Report Type: Spontaneous
  Country: US (occurrence: US)
  Receive Date: 20131216
  Receipt Date: 20131216
  Transmission Date: 20140711
  Serious: No
  Sender: FDA-Public Use
  Company Number: US-TEVA-413856USA

PATIENT
  Age: 33 Year
  Sex: Female

DRUGS (5)
  1. PARAGARD 380A [Suspect]
     Indication: CONTRACEPTION
     Route: 015
     Dates: start: 20130510, end: 20130613
  2. WARFARIN [Concomitant]
     Indication: THROMBOSIS PROPHYLAXIS
     Route: 048
     Dates: start: 20130326
  3. ZOLOFT [Concomitant]
     Indication: DEPRESSION
     Route: 048
  4. NPH INSULIN [Concomitant]
     Indication: TYPE 1 DIABETES MELLITUS
  5. INSULIN, REGULAR [Concomitant]
     Indication: TYPE 1 DIABETES MELLITUS

REACTIONS (2)
  - Metrorrhagia [Unknown]
  - Device expulsion [Recovered/Resolved]
